FAERS Safety Report 15137274 (Version 2)
Quarter: 2018Q3

REPORT INFORMATION
  Report Type: Spontaneous
  Country: US (occurrence: US)
  Receive Date: 20180712
  Receipt Date: 20180725
  Transmission Date: 20181010
  Serious: Yes (Hospitalization)
  Sender: FDA-Public Use
  Company Number: US-VIFOR (INTERNATIONAL) INC.-VIT-2018-06782

PATIENT
  Age: 75 Year
  Sex: Male

DRUGS (28)
  1. PARACETAMOL [Concomitant]
     Active Substance: ACETAMINOPHEN
  2. IRON [Concomitant]
     Active Substance: IRON
  3. FENOFIBRATE. [Concomitant]
     Active Substance: FENOFIBRATE
  4. MIRALAX [Concomitant]
     Active Substance: POLYETHYLENE GLYCOL 3350
  5. PYRIDOXINE HYDROCHLORIDE. [Concomitant]
     Active Substance: PYRIDOXINE HYDROCHLORIDE
  6. FAMOTIDINE. [Concomitant]
     Active Substance: FAMOTIDINE
  7. LASIX [Concomitant]
     Active Substance: FUROSEMIDE
  8. CIPROFLOXACIN HYDROCHLORIDE. [Concomitant]
     Active Substance: CIPROFLOXACIN HYDROCHLORIDE
  9. OMEPRAZOLE. [Concomitant]
     Active Substance: OMEPRAZOLE
  10. PYRAZINAMIDE. [Concomitant]
     Active Substance: PYRAZINAMIDE
  11. ETHAMBUTOL DIHYDROCHLORIDE [Concomitant]
     Active Substance: ETHAMBUTOL HYDROCHLORIDE
  12. ISONIAZID. [Concomitant]
     Active Substance: ISONIAZID
  13. SODIUM BICARBONATE. [Concomitant]
     Active Substance: SODIUM BICARBONATE
  14. AMLODIPINE BESILATE [Concomitant]
     Active Substance: AMLODIPINE BESYLATE
  15. HYDROXYCHLOROQUINE SULFATE. [Concomitant]
     Active Substance: HYDROXYCHLOROQUINE SULFATE
  16. CLONIDINE HYDROCHLORIDE. [Concomitant]
     Active Substance: CLONIDINE HYDROCHLORIDE
  17. VELTASSA [Suspect]
     Active Substance: PATIROMER
     Indication: HYPERKALAEMIA
     Route: 048
     Dates: start: 20160930
  18. COLECALCIFEROL~~CALCIUM CARBONATE [Concomitant]
  19. HYDROCHLOROTHIAZIDE~~VALSARTAN [Concomitant]
  20. SYSTANE (HYPROMELLOSE 2910 (4000 MPA.S)) [Concomitant]
     Active Substance: HYPROMELLOSE 2910 (4000 MPA.S)
  21. RIFAMPICIN [Concomitant]
     Active Substance: RIFAMPIN
  22. HYDRALAZINE HYDROCHLORIDE. [Concomitant]
     Active Substance: HYDRALAZINE HYDROCHLORIDE
  23. ERGOCALCIFEROL~~ASCORBIC ACID~~TOCOPHEROL~~FOLIC ACID~~RETINOL~~VITAMIN B NOS [Concomitant]
  24. ASCORBIC ACID~~MANGANESE SULFATE~~CHONDROITIN SULFATE SODIUM~~GLUCOSAMINE SULFATE [Concomitant]
  25. FLONASE [Concomitant]
     Active Substance: FLUTICASONE PROPIONATE
     Indication: HYPERSENSITIVITY
  26. ACETYLSALICYLIC ACID [Concomitant]
     Active Substance: ASPIRIN
  27. CLOBETASOL PROPIONATE. [Concomitant]
     Active Substance: CLOBETASOL PROPIONATE
  28. FERROUS FUMARATE [Concomitant]
     Active Substance: FERROUS FUMARATE

REACTIONS (1)
  - Renal transplant [Unknown]

NARRATIVE: CASE EVENT DATE: 20180702
